FAERS Safety Report 6139094-4 (Version None)
Quarter: 2009Q1

REPORT INFORMATION
  Report Type: 
  Country: None (occurrence: None)
  Receive Date: 20090324
  Receipt Date: 20090322
  Transmission Date: 20090719
  Serious: Yes (Other)
  Sender: FDA-Public Use
  Company Number: 2009SP006314

PATIENT
  Sex: Male

DRUGS (1)
  1. PEG-INTRON [Suspect]
     Indication: HEPATITIS C

REACTIONS (3)
  - ALCOHOL USE [None]
  - FEMUR FRACTURE [None]
  - SPINAL FRACTURE [None]
